FAERS Safety Report 13757937 (Version 1)
Quarter: 2017Q3

REPORT INFORMATION
  Report Type: Spontaneous
  Country: GB (occurrence: GB)
  Receive Date: 20170717
  Receipt Date: 20170717
  Transmission Date: 20171127
  Serious: Yes (Other)
  Sender: FDA-Public Use
  Company Number: GB-009507513-1707GBR003084

PATIENT
  Age: 63 Year
  Sex: Male
  Weight: 102.7 kg

DRUGS (8)
  1. LOSARTAN POTASSIUM. [Concomitant]
     Active Substance: LOSARTAN POTASSIUM
     Indication: HYPERTENSION
     Dates: start: 20161003
  2. PENTASA [Concomitant]
     Active Substance: MESALAMINE
     Indication: COLITIS ULCERATIVE
     Dates: start: 20161003
  3. APERCAP [Concomitant]
     Indication: ABDOMINAL DISTENSION
     Dosage: AS NEEDED FOR WIND / BLOATING
     Dates: start: 20161116
  4. SITAGLIPTIN PHOSPHATE [Suspect]
     Active Substance: SITAGLIPTIN PHOSPHATE
     Indication: DIABETES MELLITUS
     Dates: end: 201612
  5. PEPPERMINT OIL [Concomitant]
     Active Substance: PEPPERMINT OIL
     Indication: ABDOMINAL DISTENSION
     Dosage: 1 THREE TIMES A DAY
     Dates: start: 20161116
  6. LANSOPRAZOLE. [Concomitant]
     Active Substance: LANSOPRAZOLE
     Indication: DYSPEPSIA
     Dosage: INCREASE TO 2 DAILY IF DYSPEPSIA RECURS
     Dates: start: 20161003
  7. SIMVASTATIN. [Concomitant]
     Active Substance: SIMVASTATIN
     Indication: BLOOD CHOLESTEROL INCREASED
     Dosage: AT NIGHT
     Dates: start: 20161003
  8. ASPIRIN. [Concomitant]
     Active Substance: ASPIRIN
     Dates: start: 20161003

REACTIONS (1)
  - Colitis ulcerative [Recovered/Resolved]

NARRATIVE: CASE EVENT DATE: 20161015
